FAERS Safety Report 12283061 (Version 1)
Quarter: 2016Q2

REPORT INFORMATION
  Report Type: Spontaneous
  Country: BR (occurrence: BR)
  Receive Date: 20160419
  Receipt Date: 20160419
  Transmission Date: 20160815
  Serious: Yes (Other)
  Sender: FDA-Public Use
  Company Number: BR-ASTRAZENECA-2016SE39768

PATIENT
  Sex: Male

DRUGS (11)
  1. CYCLOSPORINE. [Suspect]
     Active Substance: CYCLOSPORINE
     Dosage: 100MG/ML, GENERIC 1.7ML BID
     Route: 065
     Dates: end: 20160322
  2. FOLIC ACID. [Concomitant]
     Active Substance: FOLIC ACID
  3. BROMOPRIDE [Concomitant]
     Active Substance: BROMOPRIDE
  4. MAGNESIUM [Concomitant]
     Active Substance: MAGNESIUM
  5. MERONEM [Suspect]
     Active Substance: MEROPENEM
     Route: 042
     Dates: start: 20160320, end: 20160322
  6. ESCITALOPRAM [Concomitant]
     Active Substance: ESCITALOPRAM OXALATE
  7. FLUCONAZOLE. [Concomitant]
     Active Substance: FLUCONAZOLE
  8. VALACICLOVIR [Concomitant]
     Active Substance: VALACYCLOVIR HYDROCHLORIDE
  9. MERONEM [Suspect]
     Active Substance: MEROPENEM
     Route: 042
     Dates: start: 20160210, end: 2016
  10. SULFAMETHOXAZOLE AND TRIMETHOPRIM [Concomitant]
     Active Substance: SULFAMETHOXAZOLE\TRIMETHOPRIM
  11. DEXCLORFENIRAMINA [Concomitant]

REACTIONS (8)
  - Device related infection [Unknown]
  - Pruritus [Unknown]
  - Rash [Unknown]
  - Skin exfoliation [Not Recovered/Not Resolved]
  - Drug hypersensitivity [Unknown]
  - Face oedema [Not Recovered/Not Resolved]
  - Erythema [Recovered/Resolved]
  - Staphylococcus test positive [Unknown]

NARRATIVE: CASE EVENT DATE: 20160210
